FAERS Safety Report 6475581-7 (Version None)
Quarter: 2009Q4

REPORT INFORMATION
  Report Type: 
  Country: None (occurrence: None)
  Receive Date: 20091204
  Receipt Date: 20091201
  Transmission Date: 20100525
  Serious: Yes (Disabling)
  Sender: FDA-Public Use
  Company Number: US-MERCK-0910USA01406

PATIENT
  Age: 59 Year
  Sex: Male
  Weight: 74 kg

DRUGS (2)
  1. VYTORIN [Suspect]
     Indication: BLOOD CHOLESTEROL INCREASED
     Route: 048
     Dates: start: 20060915, end: 20081201
  2. VYTORIN [Suspect]
     Route: 048
     Dates: start: 20090309

REACTIONS (4)
  - APHASIA [None]
  - DEMENTIA [None]
  - MEMORY IMPAIRMENT [None]
  - MENTAL DISORDER [None]
